FAERS Safety Report 7122149-5 (Version None)
Quarter: 2010Q4

REPORT INFORMATION
  Report Type: 
  Country: None (occurrence: None)
  Receive Date: 20101124
  Receipt Date: 20101123
  Transmission Date: 20110411
  Serious: Yes (Other)
  Sender: FDA-Public Use
  Company Number: ES-BRISTOL-MYERS SQUIBB COMPANY-15401714

PATIENT
  Age: 49 Year
  Sex: Female

DRUGS (1)
  1. ORENCIA [Suspect]
     Indication: RHEUMATOID ARTHRITIS
     Dosage: 03JUN08-22MAR10 658 DYAS,RESTARTED ON 10MAY10 WITH DOSE DECREASED 500 MG/MONTH
     Route: 042
     Dates: start: 20080603

REACTIONS (1)
  - HEPATOTOXICITY [None]
